FAERS Safety Report 11632980 (Version 2)
Quarter: 2016Q1

REPORT INFORMATION
  Report Type: Spontaneous
  Country: US (occurrence: US)
  Receive Date: 20151015
  Receipt Date: 20160301
  Transmission Date: 20160525
  Serious: Yes (Death)
  Sender: FDA-Public Use
  Company Number: US-PFIZER INC-2014337314

PATIENT
  Age: 73 Year
  Sex: Male

DRUGS (2)
  1. INLYTA [Suspect]
     Active Substance: AXITINIB
     Dosage: 5 MG, 1X/DAY
     Route: 048
  2. INLYTA [Suspect]
     Active Substance: AXITINIB
     Indication: MYELODYSPLASTIC SYNDROME
     Dosage: 5 MG, 2X/DAY
     Route: 048

REACTIONS (5)
  - Parosmia [Unknown]
  - Diarrhoea [Unknown]
  - Product use issue [Unknown]
  - General physical health deterioration [Fatal]
  - Dysgeusia [Unknown]
